FAERS Safety Report 5142720-X (Version None)
Quarter: 2006Q4

REPORT INFORMATION
  Report Type: 
  Country: None (occurrence: None)
  Receive Date: 20061027
  Receipt Date: 20061010
  Transmission Date: 20070319
  Serious: Yes (Other)
  Sender: FDA-Public Use
  Company Number: US200610001886

PATIENT
  Age: 70 Year
  Sex: Female

DRUGS (5)
  1. SYMBYAX [Suspect]
     Indication: BIPOLAR DISORDER
     Dosage: 6/50 MG
     Dates: start: 20060101
  2. LAMICTAL [Concomitant]
  3. EFFEXOR XR [Concomitant]
  4. LORAZEPAM [Concomitant]
  5. ESZOPICLONE (ESZOPICLONE) [Concomitant]

REACTIONS (1)
  - SKIN HAEMORRHAGE [None]
